FAERS Safety Report 10550825 (Version 1)
Quarter: 2014Q4

REPORT INFORMATION
  Report Type: Spontaneous
  Country: GB (occurrence: None)
  Receive Date: 20141027
  Receipt Date: 20141027
  Transmission Date: 20150529
  Serious: Yes (Life-Threatening, Hospitalization, Disabling, Other)
  Sender: FDA-Public Use
  Company Number: GB-DEXPHARM-20140655

PATIENT
  Age: 48 Year
  Sex: Male

DRUGS (1)
  1. OMEPRAZOLE  ACTIVE SUBSTANCES: OMEPRAZOLE [Suspect]
     Active Substance: OMEPRAZOLE
     Indication: BARRETT^S OESOPHAGUS
     Dosage: DOSAGES/INTERVAL: 1 DAYS
     Route: 048
     Dates: end: 20130411

REACTIONS (6)
  - Electrolyte imbalance [None]
  - Myocarditis [None]
  - Syncope [None]
  - Arrhythmia [None]
  - Cardiomyopathy [None]
  - Diarrhoea [None]

NARRATIVE: CASE EVENT DATE: 20120411
